FAERS Safety Report 5204157-4 (Version None)
Quarter: 2007Q1

REPORT INFORMATION
  Report Type: 
  Country: None (occurrence: None)
  Receive Date: 20070110
  Receipt Date: 20051220
  Transmission Date: 20070707
  Serious: No
  Sender: FDA-Public Use
  Company Number: US-BRISTOL-MYERS SQUIBB COMPANY-13223219

PATIENT
  Age: 56 Year
  Sex: Female
  Weight: 63 kg

DRUGS (6)
  1. ABILIFY [Suspect]
     Indication: BIPOLAR DISORDER
  2. LEXAPRO [Suspect]
  3. TEGRETOL [Concomitant]
  4. LORAZEPAM [Concomitant]
  5. RELAFEN [Concomitant]
  6. PLAQUENIL [Concomitant]

REACTIONS (3)
  - ANXIETY [None]
  - RESTLESSNESS [None]
  - WEIGHT INCREASED [None]
